FAERS Safety Report 25892301 (Version 2)
Quarter: 2025Q4

REPORT INFORMATION
  Report Type: Other
  Country: CA (occurrence: CA)
  Receive Date: 20251007
  Receipt Date: 20251202
  Transmission Date: 20260118
  Serious: Yes (Hospitalization, Other)
  Sender: INCYTE
  Company Number: CA-002147023-NVSC2025CA152638

PATIENT
  Age: 70 Year

DRUGS (6)
  1. RUXOLITINIB [Suspect]
     Active Substance: RUXOLITINIB
     Indication: Dermatitis atopic
     Dosage: UNK, BID (2 EVERY 1 DAYS)
     Route: 065
  2. RUXOLITINIB [Suspect]
     Active Substance: RUXOLITINIB
     Dosage: UNK, BID (2 EVERY 1 DAYS) (CREAM)
     Route: 065
  3. CLOBETASOL PROPIONATE [Concomitant]
     Active Substance: CLOBETASOL PROPIONATE
     Indication: Product used for unknown indication
     Dosage: UNK
     Route: 065
  4. EUCRISA [Concomitant]
     Active Substance: CRISABOROLE
     Indication: Product used for unknown indication
     Dosage: UNK (TOPICAL)
     Route: 065
  5. ZORYVE [Concomitant]
     Active Substance: ROFLUMILAST
     Indication: Product used for unknown indication
     Dosage: UNK
     Route: 065
  6. PYRITHIONE ZINC [Concomitant]
     Active Substance: PYRITHIONE ZINC
     Indication: Product used for unknown indication
     Dosage: UNK
     Route: 065

REACTIONS (2)
  - Arrhythmia [Recovered/Resolved]
  - Application site rash [Recovered/Resolved]
